FAERS Safety Report 8226654-X (Version None)
Quarter: 2012Q1

REPORT INFORMATION
  Report Type: 
  Country: None (occurrence: None)
  Receive Date: 20120322
  Receipt Date: 20120314
  Transmission Date: 20120608
  Serious: Yes (Other)
  Sender: FDA-Public Use
  Company Number: US-AMGEN-USASP2012016690

PATIENT
  Age: 58 Year
  Sex: Female

DRUGS (2)
  1. TREXALL [Concomitant]
     Dosage: 20 MG, UNK
     Dates: start: 20120101
  2. ENBREL [Suspect]
     Indication: RHEUMATOID ARTHRITIS
     Dosage: 50 MG, QWK
     Dates: start: 20110923, end: 20120306

REACTIONS (7)
  - RENAL FAILURE CHRONIC [None]
  - INJECTION SITE HAEMATOMA [None]
  - STRESS [None]
  - RHEUMATOID ARTHRITIS [None]
  - NAIL DISCOLOURATION [None]
  - ANAEMIA [None]
  - BLOOD TEST ABNORMAL [None]
